FAERS Safety Report 15931558 (Version 1)
Quarter: 2019Q1

REPORT INFORMATION
  Report Type: Report from Study
  Country: US (occurrence: US)
  Receive Date: 20190207
  Receipt Date: 20190207
  Transmission Date: 20190417
  Serious: Yes (Hospitalization, Other)
  Sender: FDA-Public Use
  Company Number: PHEH2019US005376

PATIENT
  Sex: Female

DRUGS (1)
  1. ENTRESTO [Suspect]
     Active Substance: SACUBITRIL\VALSARTAN
     Indication: PRODUCT USED FOR UNKNOWN INDICATION
     Route: 048

REACTIONS (8)
  - Gait disturbance [Unknown]
  - Chest discomfort [Unknown]
  - Dyspnoea [Unknown]
  - Blood potassium increased [Unknown]
  - Renal impairment [Unknown]
  - Fluid retention [Unknown]
  - Blood magnesium decreased [Unknown]
  - Pneumonia viral [Unknown]
